FAERS Safety Report 8990440 (Version 1)
Quarter: 2012Q4

REPORT INFORMATION
  Report Type: 
  Country: US (occurrence: US)
  Receive Date: 20121228
  Receipt Date: 20121228
  Transmission Date: 20130627
  Serious: Yes (Hospitalization)
  Sender: FDA-Public Use
  Company Number: US-B.I. PHARMACEUTICALS,INC./RIDGEFIELD-2012-BI-04079BP

PATIENT
  Age: 70 Year
  Sex: Female
  Weight: 113 kg

DRUGS (2)
  1. PRADAXA [Suspect]
     Indication: CEREBROVASCULAR ACCIDENT PROPHYLAXIS
     Dosage: 150 mg
     Route: 048
  2. PRADAXA [Suspect]
     Indication: ATRIAL FIBRILLATION

REACTIONS (2)
  - Lower gastrointestinal haemorrhage [Recovered/Resolved]
  - Blood creatinine increased [Unknown]
